FAERS Safety Report 7965330-5 (Version None)
Quarter: 2011Q4

REPORT INFORMATION
  Report Type: 
  Country: None (occurrence: None)
  Receive Date: 20111208
  Receipt Date: 20111202
  Transmission Date: 20120403
  Serious: Yes (Other)
  Sender: FDA-Public Use
  Company Number: JP-ABBOTT-11P-087-0858169-00

PATIENT
  Sex: Female
  Weight: 58 kg

DRUGS (9)
  1. FENTANYL [Concomitant]
     Indication: ANALGESIC THERAPY
  2. PROPOFOL [Concomitant]
     Indication: INDUCTION OF ANAESTHESIA
     Route: 042
     Dates: start: 20061216, end: 20061216
  3. FENTANYL [Concomitant]
     Indication: INDUCTION OF ANAESTHESIA
     Route: 042
     Dates: start: 20061216, end: 20061216
  4. FENTANYL [Concomitant]
     Indication: MAINTENANCE OF ANAESTHESIA
  5. NITROUS OXIDE [Concomitant]
     Indication: GENERAL ANAESTHESIA
     Dosage: 50%/3L MIN
     Dates: start: 20061216, end: 20061216
  6. VECURONIUM BROMIDE [Concomitant]
     Indication: MUSCLE RELAXANT THERAPY
     Route: 042
     Dates: start: 20061216, end: 20061216
  7. OXYGEN [Concomitant]
     Indication: GENERAL ANAESTHESIA
     Dates: start: 20061216, end: 20061216
  8. SEVOFLURANE [Suspect]
     Indication: MAINTENANCE OF ANAESTHESIA
     Dosage: 1-1.5%
     Route: 055
     Dates: start: 20061216, end: 20061216
  9. DIURETICS [Concomitant]
     Indication: PRODUCT USED FOR UNKNOWN INDICATION

REACTIONS (1)
  - TORSADE DE POINTES [None]
